FAERS Safety Report 8391535-8 (Version None)
Quarter: 2012Q2

REPORT INFORMATION
  Report Type: 
  Country: None (occurrence: None)
  Receive Date: 20120529
  Receipt Date: 20120524
  Transmission Date: 20120825
  Serious: No
  Sender: FDA-Public Use
  Company Number: US-TEVA-340010USA

PATIENT
  Sex: Female
  Weight: 86.26 kg

DRUGS (2)
  1. ORTHO TRI-CYCLEN LO [Concomitant]
     Indication: CONTRACEPTION
     Dates: start: 20120520
  2. PLAN B ONE-STEP [Suspect]
     Indication: MENSTRUATION IRREGULAR
     Dosage: 1.5 MILLIGRAM;
     Route: 048
     Dates: start: 20120521, end: 20120521

REACTIONS (3)
  - NAUSEA [None]
  - DIZZINESS [None]
  - ABDOMINAL PAIN LOWER [None]
